FAERS Safety Report 21662715 (Version 1)
Quarter: 2022Q4

REPORT INFORMATION
  Report Type: Spontaneous
  Country: US (occurrence: US)
  Receive Date: 20221130
  Receipt Date: 20221130
  Transmission Date: 20230112
  Serious: No
  Sender: FDA-Public Use
  Company Number: US-TEVA-2022-US-2826668

PATIENT
  Age: 16 Year
  Sex: Female

DRUGS (2)
  1. TREXALL [Suspect]
     Active Substance: METHOTREXATE SODIUM
     Indication: Product used for unknown indication
     Dosage: ONCE A WEEK
     Route: 065
     Dates: start: 20220911
  2. DUPIXENT [Suspect]
     Active Substance: DUPILUMAB
     Indication: Dermatitis atopic
     Dosage: 200MG AT LOADING DOSE OF 600 MG 1X (ONCE), FOLLOWED BY MAINTENANCE DOSE OF 200MG QOW (EVERY OTHER WE
     Route: 058
     Dates: start: 20220816

REACTIONS (5)
  - Dehydration [Recovered/Resolved]
  - Nausea [Recovered/Resolved]
  - Migraine [Recovered/Resolved]
  - Vomiting [Recovered/Resolved]
  - Abdominal pain [Recovered/Resolved]

NARRATIVE: CASE EVENT DATE: 20220101
